FAERS Safety Report 6667256-6 (Version None)
Quarter: 2010Q2

REPORT INFORMATION
  Report Type: 
  Country: None (occurrence: None)
  Receive Date: 20100401
  Receipt Date: 20100401
  Transmission Date: 20101027
  Serious: Yes (Hospitalization, Other)
  Sender: FDA-Public Use
  Company Number: None

PATIENT
  Age: 35 Year
  Sex: Female
  Weight: 79.9 kg

DRUGS (12)
  1. AMOXICILLIN AND CLAVULANATE POTASSIUM [Suspect]
     Dosage: PO
     Route: 048
     Dates: start: 20100205, end: 20100212
  2. CEPHALEXIN [Suspect]
     Dosage: PO
     Route: 048
     Dates: start: 20100202, end: 20100205
  3. LAMOTRIGINE [Concomitant]
  4. TOPIRAMATE [Concomitant]
  5. DIPHENHYDRAMINE HYDROCHLORIDE [Concomitant]
  6. DULOXETINE HYDROCHLORIDE [Concomitant]
  7. CLONAZEPAM [Concomitant]
  8. SUMATRIPTAN SUCCINATE [Concomitant]
  9. METOCLOPRAMIDE HYDROCHLORIDE [Concomitant]
  10. FLUTICASONE/SALMETEROL; [Concomitant]
  11. FEXOFENADINE [Concomitant]
  12. CONCERTA [Concomitant]

REACTIONS (4)
  - LIVER INJURY [None]
  - NAUSEA [None]
  - PRURITUS [None]
  - VOMITING [None]
